FAERS Safety Report 19410079 (Version 1)
Quarter: 2021Q2

REPORT INFORMATION
  Report Type: Spontaneous
  Country: IE (occurrence: IE)
  Receive Date: 20210614
  Receipt Date: 20210614
  Transmission Date: 20210717
  Serious: Yes (Life-Threatening, Hospitalization, Other)
  Sender: FDA-Public Use
  Company Number: IE-LUPIN PHARMACEUTICALS INC.-2021-09178

PATIENT
  Age: 38 Year
  Sex: Female

DRUGS (4)
  1. SOLPADEINE [CAFFEINE/CODEINE PHOSPHATE/PARACETAMOL] [Suspect]
     Active Substance: ACETAMINOPHEN\CAFFEINE\CODEINE PHOSPHATE
     Indication: PRODUCT USED FOR UNKNOWN INDICATION
     Dosage: UNK (CONTAINED PEG AS EXCIPIENT)
     Route: 048
  2. DICLOFENAC [Suspect]
     Active Substance: DICLOFENAC
     Indication: PRODUCT USED FOR UNKNOWN INDICATION
     Dosage: UNK (CONTAINED HMW?PEG AS EXCIPIENT)
     Route: 030
  3. DICLOFENAC [Suspect]
     Active Substance: DICLOFENAC
     Dosage: UNK (VOLTOROL;PEG?8000 AS EXCIPIENT)
     Route: 048
  4. BETADINE [Suspect]
     Active Substance: POVIDONE-IODINE
     Indication: WOUND TREATMENT
     Dosage: UNK (CONTAINED PEG?400 AND 6000 AS EXCIPIENT)
     Route: 061

REACTIONS (3)
  - Respiratory distress [Unknown]
  - Hypersensitivity [Unknown]
  - Hypotension [Unknown]
